FAERS Safety Report 14926800 (Version 4)
Quarter: 2019Q3

REPORT INFORMATION
  Report Type: Report from Study
  Country: DE (occurrence: DE)
  Receive Date: 20180523
  Receipt Date: 20190815
  Transmission Date: 20191004
  Serious: Yes (Death, Other)
  Sender: FDA-Public Use
  Company Number: DE-ROCHE-2127840

PATIENT
  Age: 89 Year

DRUGS (2)
  1. ALTEPLASE. [Suspect]
     Active Substance: ALTEPLASE
     Indication: CEREBRAL ARTERY OCCLUSION
     Dosage: 0.9 MG/KG BODY WEIGHT, 10% WAS GIVEN
     Route: 040
  2. ALTEPLASE. [Suspect]
     Active Substance: ALTEPLASE
     Dosage: 0.9 MG/KG BODY WEIGHT, 10% WAS GIVEN
     Route: 042

REACTIONS (6)
  - Haemorrhage [Unknown]
  - Blood loss anaemia [Unknown]
  - Pulmonary haemorrhage [Unknown]
  - Epistaxis [Unknown]
  - Mouth haemorrhage [Unknown]
  - Lung disorder [Fatal]
